FAERS Safety Report 4637442-5 (Version None)
Quarter: 2005Q2

REPORT INFORMATION
  Report Type: 
  Country: None (occurrence: None)
  Receive Date: 20050325
  Receipt Date: 20041206
  Transmission Date: 20051028
  Serious: No
  Sender: FDA-Public Use
  Company Number: USA041285424

PATIENT
  Age: 68 Year
  Sex: Female

DRUGS (2)
  1. FORTEO [Suspect]
     Indication: OSTEOPOROSIS
     Dates: start: 20041203
  2. SALINE (SODIUM CHLORIDE) [Suspect]
     Indication: OSTEOPOROSIS
     Dates: start: 20041203

REACTIONS (1)
  - MEDICATION ERROR [None]
